FAERS Safety Report 10058435 (Version 2)
Quarter: 2014Q2

REPORT INFORMATION
  Report Type: Spontaneous
  Country: US (occurrence: US)
  Receive Date: 20140404
  Receipt Date: 20140404
  Transmission Date: 20141212
  Serious: Yes (Other)
  Sender: FDA-Public Use
  Company Number: US-GE HEALTHCARE MEDICAL DIAGNOSTICS-OSCN-PR-0805S-0261

PATIENT
  Age: 56 Year
  Sex: Male

DRUGS (2)
  1. MAGNEVIST [Suspect]
     Indication: EXTRADURAL ABSCESS
     Route: 042
     Dates: start: 20050617, end: 20050617
  2. MAGNEVIST [Suspect]
     Indication: BONE ABSCESS

REACTIONS (1)
  - Nephrogenic systemic fibrosis [Not Recovered/Not Resolved]
